FAERS Safety Report 16265204 (Version 2)
Quarter: 2020Q2

REPORT INFORMATION
  Report Type: Spontaneous
  Country: DK (occurrence: DK)
  Receive Date: 20190502
  Receipt Date: 20200408
  Transmission Date: 20200713
  Serious: Yes (Hospitalization)
  Sender: FDA-Public Use
  Company Number: DK-PFIZER INC-2019180832

PATIENT
  Age: 71 Year
  Sex: Male

DRUGS (10)
  1. PANTOPRAZOLE [Concomitant]
     Active Substance: PANTOPRAZOLE
     Indication: GASTROOESOPHAGEAL REFLUX PROPHYLAXIS
     Dosage: 20 MG, 1X/DAY
     Route: 048
     Dates: start: 20171113
  2. HJERDYL [Concomitant]
     Active Substance: ASPIRIN
     Indication: THROMBOSIS PROPHYLAXIS
     Dosage: 75 MG, 1X/DAY
     Route: 048
     Dates: start: 20170602
  3. LOSARTAN. [Concomitant]
     Active Substance: LOSARTAN
     Indication: HYPERTENSION
     Dosage: 50 MG, 1X/DAY
     Route: 048
     Dates: start: 20151113
  4. ZOLEDRONIC ACID [Suspect]
     Active Substance: ZOLEDRONIC ACID
     Indication: BONE DISORDER
     Dosage: 4 MG, EVERY 4 WEEKS (STRENGTH: 4 MG/100 ML)
     Route: 042
     Dates: start: 201612, end: 20181129
  5. ZOPICLONE [Concomitant]
     Active Substance: ZOPICLONE
     Indication: INSOMNIA
     Dosage: 7.5 MG, 1X/DAY
     Route: 048
     Dates: start: 20170602
  6. ATORVASTATIN [Concomitant]
     Active Substance: ATORVASTATIN
     Indication: CARDIOVASCULAR EVENT PROPHYLAXIS
     Dosage: 80 MG, 1X/DAY
     Route: 048
     Dates: start: 20140527
  7. METOPROLOL TARTRATE. [Concomitant]
     Active Substance: METOPROLOL TARTRATE
     Indication: THROMBOSIS PROPHYLAXIS
     Dosage: 50 MG, 1X/DAY
     Route: 048
     Dates: start: 20150323
  8. CONTALGIN [Concomitant]
     Active Substance: MORPHINE SULFATE
     Indication: PAIN
     Dosage: 30 MG, 1X/DAY
     Route: 048
     Dates: start: 20161206
  9. GLYTRIN [GLYCERYL TRINITRATE] [Concomitant]
     Indication: CHEST PAIN
     Dosage: 1 DF, AS NEEDED (A PUFF AS NEEDED UNDER THE TONGUE WHEN IN PAIN)
     Route: 060
     Dates: start: 20160603
  10. PARACETAMOL [Concomitant]
     Active Substance: ACETAMINOPHEN
     Indication: PAIN
     Dosage: 4000 MG, 1X/DAY
     Route: 048
     Dates: start: 20161206

REACTIONS (5)
  - Impaired healing [Unknown]
  - Osteonecrosis of jaw [Not Recovered/Not Resolved]
  - Oral pain [Unknown]
  - Purulence [Unknown]
  - Exposed bone in jaw [Unknown]

NARRATIVE: CASE EVENT DATE: 2018
